FAERS Safety Report 7490877-8 (Version None)
Quarter: 2011Q2

REPORT INFORMATION
  Report Type: 
  Country: None (occurrence: None)
  Receive Date: 20110517
  Receipt Date: 20110517
  Transmission Date: 20111010
  Serious: Yes (Other)
  Sender: FDA-Public Use
  Company Number: None

PATIENT
  Age: 42 Year
  Sex: Female
  Weight: 67.1324 kg

DRUGS (1)
  1. LEVAQUIN [Suspect]
     Indication: BRONCHITIS
     Dates: start: 20101206, end: 20101211

REACTIONS (11)
  - PAIN IN EXTREMITY [None]
  - NAUSEA [None]
  - HYPOAESTHESIA [None]
  - BURNING SENSATION [None]
  - ARTHRALGIA [None]
  - PAIN [None]
  - BEDRIDDEN [None]
  - ABASIA [None]
  - QUALITY OF LIFE DECREASED [None]
  - NEUROPATHY PERIPHERAL [None]
  - PARAESTHESIA [None]
